FAERS Safety Report 9883787 (Version 1)
Quarter: 2014Q1

REPORT INFORMATION
  Report Type: Spontaneous
  Country: CH (occurrence: CH)
  Receive Date: 20140210
  Receipt Date: 20140210
  Transmission Date: 20141002
  Serious: Yes (Other)
  Sender: FDA-Public Use
  Company Number: CH-BAYER-2014-019202

PATIENT
  Sex: Female

DRUGS (1)
  1. INTERFERON BETA - 1B [Suspect]
     Indication: RELAPSING-REMITTING MULTIPLE SCLEROSIS
     Dosage: UNK
     Route: 058
     Dates: start: 200611, end: 200711

REACTIONS (1)
  - Multiple sclerosis relapse [None]
